FAERS Safety Report 15858300 (Version 2)
Quarter: 2019Q3

REPORT INFORMATION
  Report Type: Spontaneous
  Country: US (occurrence: US)
  Receive Date: 20190123
  Receipt Date: 20190816
  Transmission Date: 20191004
  Serious: Yes (Other)
  Sender: FDA-Public Use
  Company Number: US-MYLANLABS-2019M1003472

PATIENT
  Age: 67 Year
  Sex: Female

DRUGS (4)
  1. LEVETIRACETAM TABLETS, USP [Suspect]
     Active Substance: LEVETIRACETAM
     Indication: NEUROPATHY PERIPHERAL
     Dosage: 2 DOSAGE FORM, TID
     Route: 048
     Dates: start: 2010
  2. LYRICA [Concomitant]
     Active Substance: PREGABALIN
  3. PAMELOR [Concomitant]
     Active Substance: NORTRIPTYLINE HYDROCHLORIDE
  4. LEVETIRACETAM TABLETS, USP [Suspect]
     Active Substance: LEVETIRACETAM
     Indication: PAIN MANAGEMENT

REACTIONS (6)
  - Cough [Not Recovered/Not Resolved]
  - Off label use [Not Recovered/Not Resolved]
  - Secretion discharge [Not Recovered/Not Resolved]
  - Pneumonia [Not Recovered/Not Resolved]
  - Wheezing [Not Recovered/Not Resolved]
  - Dysphonia [Not Recovered/Not Resolved]
